FAERS Safety Report 25596710 (Version 1)
Quarter: 2025Q3

REPORT INFORMATION
  Report Type: Spontaneous
  Country: US (occurrence: None)
  Receive Date: 20250722
  Receipt Date: 20250722
  Transmission Date: 20251020
  Serious: No
  Sender: FDA-CTU
  Company Number: None

PATIENT
  Age: 76 Year
  Sex: Female
  Weight: 45 kg

DRUGS (1)
  1. REPATHA [Suspect]
     Active Substance: EVOLOCUMAB
     Indication: Blood cholesterol increased
     Dosage: FREQUENCY : MONTHLY;?
     Route: 058

REACTIONS (3)
  - Rhinorrhoea [None]
  - Paranasal sinus discomfort [None]
  - Headache [None]

NARRATIVE: CASE EVENT DATE: 20241119
